FAERS Safety Report 20680101 (Version 2)
Quarter: 2022Q2

REPORT INFORMATION
  Report Type: Spontaneous
  Country: GB (occurrence: GB)
  Receive Date: 20220406
  Receipt Date: 20220502
  Transmission Date: 20220721
  Serious: Yes (Hospitalization, Disabling)
  Sender: FDA-Public Use
  Company Number: GB-MHRA-MED-202203301624346280-MY3XD

PATIENT
  Age: 55 Year
  Sex: Female

DRUGS (4)
  1. CANDESARTAN [Suspect]
     Active Substance: CANDESARTAN
     Indication: Hypertension
     Dosage: 24 MILLIGRAM
     Dates: end: 202203
  2. AMLODIPINE [Concomitant]
     Active Substance: AMLODIPINE BESYLATE
     Indication: Hypertension
     Dosage: UNK
     Route: 065
  3. ATROVENT [Concomitant]
     Active Substance: IPRATROPIUM BROMIDE
     Indication: Hypersensitivity
     Dosage: UNK
     Route: 065
  4. DALTEPARIN [Concomitant]
     Active Substance: DALTEPARIN
     Indication: Thrombosis
     Dosage: UNK
     Route: 065
     Dates: start: 202102

REACTIONS (9)
  - Feeling of body temperature change [Recovering/Resolving]
  - Tremor [Recovered/Resolved]
  - Drug hypersensitivity [Recovering/Resolving]
  - Musculoskeletal pain [Recovering/Resolving]
  - Pain [Recovered/Resolved]
  - Tinnitus [Recovering/Resolving]
  - Blood sodium decreased [Recovering/Resolving]
  - Dyspnoea [Recovering/Resolving]
  - Fatigue [Recovering/Resolving]

NARRATIVE: CASE EVENT DATE: 20220201
